FAERS Safety Report 6273486-8 (Version None)
Quarter: 2009Q3

REPORT INFORMATION
  Report Type: 
  Country: None (occurrence: None)
  Receive Date: 20090716
  Receipt Date: 20090704
  Transmission Date: 20100115
  Serious: No
  Sender: FDA-Public Use
  Company Number: 2009-199673-NL

PATIENT
  Age: 68 Year
  Sex: Female

DRUGS (1)
  1. MIRTAZAPINE [Suspect]
     Indication: DEPRESSION
     Dosage: 30 MG QD
     Route: 048
     Dates: start: 20090210, end: 20090220

REACTIONS (3)
  - HYPOAESTHESIA ORAL [None]
  - SWOLLEN TONGUE [None]
  - TONGUE DISORDER [None]
